FAERS Safety Report 5079252-3 (Version None)
Quarter: 2006Q3

REPORT INFORMATION
  Report Type: 
  Country: None (occurrence: None)
  Receive Date: 20060809
  Receipt Date: 20060730
  Transmission Date: 20061208
  Serious: Yes (Other)
  Sender: FDA-Public Use
  Company Number: 2006094435

PATIENT
  Age: 59 Year
  Sex: Male
  Weight: 79.3795 kg

DRUGS (3)
  1. LIPITOR [Suspect]
     Indication: BLOOD CHOLESTEROL INCREASED
     Dosage: 5 MG (5 MG, 1 IN 1 D), ORAL
     Route: 048
     Dates: start: 20050101, end: 20060701
  2. ALL OTHER THERAPEUTIC PRODUCTS [Concomitant]
  3. DIURETICS [Concomitant]

REACTIONS (3)
  - DYSSTASIA [None]
  - FIBROMYALGIA [None]
  - SLEEP DISORDER [None]
